FAERS Safety Report 24680382 (Version 1)
Quarter: 2024Q4

REPORT INFORMATION
  Report Type: Spontaneous
  Country: US (occurrence: US)
  Receive Date: 20241129
  Receipt Date: 20241129
  Transmission Date: 20250114
  Serious: Yes (Other)
  Sender: BRACCO
  Company Number: US-BRACCO-2024US03932

PATIENT
  Age: 26 Year
  Sex: Female

DRUGS (7)
  1. LUMASON [Suspect]
     Active Substance: SULFUR HEXAFLUORIDE
     Indication: Echocardiogram
     Dosage: 1 MG, SINGLE
     Route: 042
     Dates: start: 20240630, end: 20240630
  2. LUMASON [Suspect]
     Active Substance: SULFUR HEXAFLUORIDE
     Indication: Echocardiogram
     Dosage: 1 MG, SINGLE
     Route: 042
     Dates: start: 20240630, end: 20240630
  3. LUMASON [Suspect]
     Active Substance: SULFUR HEXAFLUORIDE
     Indication: Echocardiogram
     Dosage: 1 MG, SINGLE
     Route: 042
     Dates: start: 20240630, end: 20240630
  4. LOVENOX [Concomitant]
     Active Substance: ENOXAPARIN SODIUM
  5. PHENERGAN [Concomitant]
     Active Substance: PROMETHAZINE HYDROCHLORIDE
  6. PROTONIX [Concomitant]
     Active Substance: PANTOPRAZOLE SODIUM
  7. VITAMINS [Concomitant]
     Active Substance: VITAMINS

REACTIONS (1)
  - Hypersensitivity [Recovered/Resolved]

NARRATIVE: CASE EVENT DATE: 20240630
